FAERS Safety Report 16772356 (Version 1)
Quarter: 2019Q4

REPORT INFORMATION
  Report Type: Spontaneous
  Country: US (occurrence: US)
  Receive Date: 20190904
  Receipt Date: 20190904
  Transmission Date: 20200122
  Serious: No
  Sender: FDA-Public Use
  Company Number: None

PATIENT
  Age: 38 Year
  Sex: Female
  Weight: 120.6 kg

DRUGS (8)
  1. OMEPRAZOLE. [Concomitant]
     Active Substance: OMEPRAZOLE
  2. DULOXETINE HCL 20MG CPEP [Suspect]
     Active Substance: DULOXETINE HYDROCHLORIDE
     Indication: DEPRESSION
     Dosage: ?          QUANTITY:1 CAPSULE(S);?
     Route: 048
  3. ELINEST [Concomitant]
     Active Substance: ETHINYL ESTRADIOL\NORGESTREL
  4. MULTIVITAMIN [Concomitant]
     Active Substance: VITAMINS
  5. ADVAIR HFA [Concomitant]
     Active Substance: FLUTICASONE PROPIONATE\SALMETEROL XINAFOATE
  6. DULOXETINE HCL 20MG CPEP [Suspect]
     Active Substance: DULOXETINE HYDROCHLORIDE
     Indication: ANXIETY
     Dosage: ?          QUANTITY:1 CAPSULE(S);?
     Route: 048
  7. CLARITIN [Concomitant]
     Active Substance: LORATADINE
  8. CPAP [Concomitant]
     Active Substance: DEVICE

REACTIONS (4)
  - Therapy cessation [None]
  - Anxiety [None]
  - Depression [None]
  - Treatment failure [None]

NARRATIVE: CASE EVENT DATE: 20190802
